FAERS Safety Report 19802410 (Version 1)
Quarter: 2021Q3

REPORT INFORMATION
  Report Type: Spontaneous
  Country: BH (occurrence: BH)
  Receive Date: 20210908
  Receipt Date: 20210908
  Transmission Date: 20211014
  Serious: Yes (Hospitalization, Other)
  Sender: FDA-Public Use
  Company Number: BH-SUN PHARMACEUTICAL INDUSTRIES LTD-2021RR-310355

PATIENT
  Age: 52 Year
  Sex: Female

DRUGS (14)
  1. FLUTICASONE FUROATE/VILANTEROL [Suspect]
     Active Substance: FLUTICASONE FUROATE\VILANTEROL TRIFENATATE
     Indication: COVID-19 PNEUMONIA
     Dosage: 1 PUFF, ONCE DAILY
     Route: 065
  2. PARACETAMOL [Suspect]
     Active Substance: ACETAMINOPHEN
     Indication: COVID-19 PNEUMONIA
     Dosage: 1000 MG/ ORAL OR INTRAVENOUS, EVERY 6 HOURS
     Route: 065
  3. CEFTRIAXONE. [Suspect]
     Active Substance: CEFTRIAXONE
     Indication: COVID-19 PNEUMONIA
     Dosage: 2000 MILLIGRAM, DAILY
     Route: 042
  4. VITAMIN D [Suspect]
     Active Substance: VITAMIN D NOS
     Indication: COVID-19 PNEUMONIA
     Dosage: 50000 INTERNATIONAL UNIT, WEEKLY
     Route: 048
  5. METOCLOPRAMIDE. [Suspect]
     Active Substance: METOCLOPRAMIDE
     Indication: COVID-19 PNEUMONIA
     Dosage: 10 MILLIGRAM, 1DOSE/4HOUR
     Route: 042
  6. ENOXAPARIN SODIUM. [Suspect]
     Active Substance: ENOXAPARIN SODIUM
     Indication: COVID-19 PNEUMONIA
     Dosage: 4000?12000 IU, TWO TIMES DAILY
     Route: 058
  7. SALBUTAMOL [Suspect]
     Active Substance: ALBUTEROL
     Indication: COVID-19 PNEUMONIA
     Dosage: 5 MILLIGRAM, TID
     Route: 065
  8. IPRATROPIUM BROMIDE. [Suspect]
     Active Substance: IPRATROPIUM BROMIDE
     Indication: COVID-19 PNEUMONIA
     Dosage: 250 MICROGRAM, TID
     Route: 065
  9. DOXYCYCLINE. [Suspect]
     Active Substance: DOXYCYCLINE
     Indication: COVID-19 PNEUMONIA
     Dosage: 100 MILLIGRAM, BID
     Route: 048
  10. OMEPRAZOLE. [Suspect]
     Active Substance: OMEPRAZOLE
     Dosage: 20 MILLIGRAM, BID
     Route: 042
  11. ZINC GLUCONATE [Suspect]
     Active Substance: ZINC GLUCONATE
     Indication: COVID-19 PNEUMONIA
     Dosage: 50 MILLIGRAM, DAILY
     Route: 048
  12. AZITHROMYCIN ANHYDROUS. [Suspect]
     Active Substance: AZITHROMYCIN ANHYDROUS
     Indication: COVID-19 PNEUMONIA
     Dosage: 500 MILLIGRAM, DAILY
     Route: 048
  13. PANTOPRAZOLE [Suspect]
     Active Substance: PANTOPRAZOLE
     Indication: COVID-19 PNEUMONIA
     Dosage: 20 MILLIGRAM, DAILY
     Route: 048
  14. OMEPRAZOLE. [Suspect]
     Active Substance: OMEPRAZOLE
     Indication: COVID-19 PNEUMONIA
     Dosage: 20 MILLIGRAM, BID
     Route: 048

REACTIONS (2)
  - Pancreatitis [Unknown]
  - Off label use [Unknown]
